FAERS Safety Report 6780166-9 (Version None)
Quarter: 2010Q2

REPORT INFORMATION
  Report Type: 
  Country: None (occurrence: None)
  Receive Date: 20100618
  Receipt Date: 20100610
  Transmission Date: 20101027
  Serious: Yes (Other)
  Sender: FDA-Public Use
  Company Number: US-GENENTECH-302921

PATIENT
  Age: 63 Year
  Sex: Male
  Weight: 114.7 kg

DRUGS (7)
  1. RITUXIMAB [Suspect]
     Indication: MANTLE CELL LYMPHOMA
     Dosage: 375 MG/M2, UNK
     Route: 042
     Dates: start: 20071215, end: 20080201
  2. VELCADE [Suspect]
     Indication: MANTLE CELL LYMPHOMA
     Dosage: 1.3 MG/M2, UNK
     Route: 040
     Dates: start: 20071215, end: 20080204
  3. CYCLOPHOSPHAMIDE [Suspect]
     Indication: MANTLE CELL LYMPHOMA
     Dosage: 300 MG/M2, UNK
     Route: 042
     Dates: start: 20071215, end: 20080204
  4. DEXAMETHASONE [Suspect]
     Indication: MANTLE CELL LYMPHOMA
     Dosage: 40 MG, UNK
     Dates: start: 20071215, end: 20080204
  5. DOXORUBICIN HCL [Suspect]
     Indication: MANTLE CELL LYMPHOMA
     Dosage: 25 MG/M2, UNK
     Route: 042
     Dates: start: 20071215, end: 20080202
  6. NEULASTA [Suspect]
     Indication: MANTLE CELL LYMPHOMA
     Dosage: 6 MG, UNK
     Route: 058
     Dates: start: 20071215, end: 20080205
  7. VINCRISTINE [Suspect]
     Indication: MANTLE CELL LYMPHOMA
     Dosage: 1 MG, UNK
     Route: 040
     Dates: start: 20071215, end: 20080203

REACTIONS (3)
  - ALOPECIA [None]
  - NEUROPATHY PERIPHERAL [None]
  - OEDEMA [None]
